FAERS Safety Report 21843353 (Version 1)
Quarter: 2023Q1

REPORT INFORMATION
  Report Type: Spontaneous
  Country: US (occurrence: US)
  Receive Date: 20230110
  Receipt Date: 20230110
  Transmission Date: 20230418
  Serious: No
  Sender: FDA-Public Use
  Company Number: US-PARI RESPIRATORY EQUIPMENT, INC.-2022PAR00058

PATIENT
  Age: 4 Year
  Sex: Male
  Weight: 15.873 kg

DRUGS (2)
  1. KITABIS PAK [Suspect]
     Active Substance: TOBRAMYCIN
     Indication: Cystic fibrosis
     Dosage: 5 ML (300 MG), 2X/DAY FOR 28 DAYS
  2. KALYDECO [Concomitant]
     Active Substance: IVACAFTOR

REACTIONS (2)
  - Streptococcal infection [Unknown]
  - Off label use [Unknown]

NARRATIVE: CASE EVENT DATE: 20220922
